FAERS Safety Report 4437630-7 (Version None)
Quarter: 2004Q4

REPORT INFORMATION
  Report Type: 
  Country: None (occurrence: None)
  Receive Date: 20040831
  Receipt Date: 20040820
  Transmission Date: 20050328
  Serious: Yes (Hospitalization)
  Sender: FDA-Public Use
  Company Number: JP-JNJFOC-20040806612

PATIENT
  Age: 35 Year
  Sex: Female

DRUGS (6)
  1. OFLOXACIN [Suspect]
     Indication: DRUG USE FOR UNKNOWN INDICATION
     Route: 042
  2. ROCEPHIN [Concomitant]
     Route: 042
  3. GENTAMYCIN SULFATE [Concomitant]
  4. MIXTARD HUMAN 70/30 [Concomitant]
  5. MIXTARD HUMAN 70/30 [Concomitant]
  6. MICROVAL [Concomitant]

REACTIONS (3)
  - ANTIBODY TEST POSITIVE [None]
  - CHOLESTASIS [None]
  - VENTRICULAR HYPERTROPHY [None]
